FAERS Safety Report 17362766 (Version 1)
Quarter: 2020Q1

REPORT INFORMATION
  Report Type: Spontaneous
  Country: PT (occurrence: PT)
  Receive Date: 20200203
  Receipt Date: 20200203
  Transmission Date: 20200409
  Serious: Yes (Hospitalization)
  Sender: FDA-Public Use
  Company Number: PT-MYLANLABS-2020M1006470

PATIENT
  Age: 78 Year
  Sex: Female

DRUGS (2)
  1. ACETYLSALICYLIC ACID [Concomitant]
     Active Substance: ASPIRIN
     Dosage: UNK
  2. OMEPRAZOLE. [Suspect]
     Active Substance: OMEPRAZOLE
     Indication: PRODUCT USED FOR UNKNOWN INDICATION
     Dosage: UNK

REACTIONS (4)
  - Drug interaction [Recovered/Resolved]
  - Tremor [Recovered/Resolved]
  - Hypocalcaemia [Recovered/Resolved]
  - Hypomagnesaemia [Recovered/Resolved]
